FAERS Safety Report 23524118 (Version 3)
Quarter: 2025Q1

REPORT INFORMATION
  Report Type: Spontaneous
  Country: US (occurrence: US)
  Receive Date: 20240214
  Receipt Date: 20250228
  Transmission Date: 20250409
  Serious: No
  Sender: PFIZER
  Company Number: US-PFIZER INC-PV202400020700

PATIENT
  Age: 79 Year
  Sex: Male

DRUGS (1)
  1. XELJANZ [Suspect]
     Active Substance: TOFACITINIB CITRATE
     Dates: start: 201407

REACTIONS (3)
  - Pain in extremity [Unknown]
  - Herpes zoster [Unknown]
  - Vision blurred [Unknown]

NARRATIVE: CASE EVENT DATE: 20161101
